FAERS Safety Report 5050454-5 (Version None)
Quarter: 2006Q3

REPORT INFORMATION
  Report Type: 
  Country: None (occurrence: None)
  Receive Date: 20060707
  Receipt Date: 20060622
  Transmission Date: 20061208
  Serious: Yes (Death, Hospitalization)
  Sender: FDA-Public Use
  Company Number: 8017577

PATIENT
  Sex: Female

DRUGS (4)
  1. KEPPRA [Suspect]
     Indication: EPILEPSY
     Dosage: 1500 MG IV
     Route: 042
  2. KEPPRA [Suspect]
     Indication: EPILEPSY
     Dosage: 1500 MG
  3. DIAZEPAM [Concomitant]
  4. PROPOFOL [Concomitant]

REACTIONS (3)
  - CARDIAC FAILURE ACUTE [None]
  - MYOCARDIAL INFARCTION [None]
  - STATUS EPILEPTICUS [None]
